FAERS Safety Report 4845363-8 (Version None)
Quarter: 2005Q4

REPORT INFORMATION
  Report Type: 
  Country: None (occurrence: None)
  Receive Date: 20051205
  Receipt Date: 20051130
  Transmission Date: 20060501
  Serious: Yes (Other)
  Sender: FDA-Public Use
  Company Number: 2005023641

PATIENT
  Age: 37 Year
  Sex: Male
  Weight: 70 kg

DRUGS (6)
  1. QUILONUM RETARD [Suspect]
     Dosage: 6TAB SINGLE DOSE
     Route: 048
  2. AMOXICILLIN [Suspect]
     Dosage: 5TAB SINGLE DOSE
     Route: 048
  3. DICLOFENAC [Suspect]
     Dosage: 5TAB SINGLE DOSE
     Route: 048
  4. DOXYCYCLIN [Suspect]
     Dosage: 10TAB SINGLE DOSE
     Route: 048
  5. GLADEM [Suspect]
     Dosage: 10TAB SINGLE DOSE
     Route: 048
  6. IBUPROFEN [Suspect]
     Dosage: 6TAB SINGLE DOSE
     Route: 048

REACTIONS (3)
  - DRY MOUTH [None]
  - INTENTIONAL OVERDOSE [None]
  - SUICIDE ATTEMPT [None]
